FAERS Safety Report 20039665 (Version 1)
Quarter: 2021Q4

REPORT INFORMATION
  Report Type: Spontaneous
  Country: US (occurrence: US)
  Receive Date: 20211106
  Receipt Date: 20211106
  Transmission Date: 20220304
  Serious: Yes (Other)
  Sender: FDA-Public Use
  Company Number: US-SA-SAC20211101000504

PATIENT
  Age: 46 Year
  Sex: Male

DRUGS (2)
  1. ZANTAC [Suspect]
     Active Substance: RANITIDINE HYDROCHLORIDE
     Indication: Dyspepsia
     Dosage: 75 MG FREQUENCY OTHER
     Dates: start: 198908
  2. ZANTAC [Suspect]
     Active Substance: RANITIDINE HYDROCHLORIDE
     Dosage: 150 MG FREQUENCY OTHER
     Dates: end: 201402

REACTIONS (1)
  - Haematological malignancy [Unknown]

NARRATIVE: CASE EVENT DATE: 20140201
